FAERS Safety Report 12380562 (Version 1)
Quarter: 2016Q2

REPORT INFORMATION
  Report Type: Spontaneous
  Country: US (occurrence: None)
  Receive Date: 20160517
  Receipt Date: 20160517
  Transmission Date: 20160815
  Serious: Yes (Disabling)
  Sender: FDA-Public Use
  Company Number: None

PATIENT
  Age: 54 Year
  Sex: Female
  Weight: 49.9 kg

DRUGS (2)
  1. CIPROFLOXACIN. [Suspect]
     Active Substance: CIPROFLOXACIN
     Route: 048
     Dates: start: 20130720, end: 20130726
  2. LEXAPRO [Concomitant]
     Active Substance: ESCITALOPRAM OXALATE

REACTIONS (19)
  - Burning sensation [None]
  - Feeling abnormal [None]
  - Glossodynia [None]
  - Paraesthesia [None]
  - Insomnia [None]
  - Nausea [None]
  - Oropharyngeal pain [None]
  - Dizziness [None]
  - Pyrexia [None]
  - Urinary tract infection [None]
  - Abnormal dreams [None]
  - Chest pain [None]
  - Hypoaesthesia [None]
  - Fall [None]
  - Fatigue [None]
  - Pruritus [None]
  - Migraine [None]
  - Urethral disorder [None]
  - Throat irritation [None]
